FAERS Safety Report 20874180 (Version 1)
Quarter: 2022Q2

REPORT INFORMATION
  Report Type: Spontaneous
  Country: GB (occurrence: GB)
  Receive Date: 20220525
  Receipt Date: 20220525
  Transmission Date: 20220721
  Serious: Yes (Disabling, Other)
  Sender: FDA-Public Use
  Company Number: None

PATIENT
  Age: 53 Year
  Sex: Female
  Weight: 89 kg

DRUGS (1)
  1. FLUCONAZOLE [Suspect]
     Active Substance: FLUCONAZOLE
     Indication: Ill-defined disorder
     Dosage: UNK
     Dates: start: 20220517

REACTIONS (3)
  - Contusion [Recovering/Resolving]
  - Hallucinations, mixed [Unknown]
  - Off label use [Unknown]

NARRATIVE: CASE EVENT DATE: 20220517
